FAERS Safety Report 5847849-6 (Version None)
Quarter: 2008Q3

REPORT INFORMATION
  Report Type: 
  Country: None (occurrence: None)
  Receive Date: 20080818
  Receipt Date: 20080808
  Transmission Date: 20090109
  Serious: Yes (Hospitalization)
  Sender: FDA-Public Use
  Company Number: BR-BAYER-200816931LA

PATIENT
  Age: 83 Year
  Sex: Male
  Weight: 70 kg

DRUGS (11)
  1. AVELOX [Suspect]
     Indication: PNEUMONIA
     Dosage: TOTAL DAILY DOSE: 400 MG  UNIT DOSE: 400 MG
     Route: 048
     Dates: start: 20080722, end: 20080725
  2. PRANDIN [Concomitant]
     Indication: DIABETES MELLITUS
     Route: 048
  3. ZETICIM [Concomitant]
     Indication: BLOOD CHOLESTEROL ABNORMAL
     Route: 048
  4. BENICAR [Concomitant]
     Indication: HYPERTENSION
     Route: 048
  5. MANIVASC [Concomitant]
     Indication: HYPERTENSION
     Route: 048
  6. DAFLON [Concomitant]
     Indication: CARDIOVASCULAR DISORDER
     Route: 048
  7. SOMALGIN CARDIO [Concomitant]
     Indication: PLATELET AGGREGATION INHIBITION
     Route: 048
  8. TAMARINO [Concomitant]
     Indication: CONSTIPATION
     Route: 048
  9. ATENSINA [Concomitant]
     Indication: HYPERTENSION
     Route: 048
  10. CARBAMAZEPINE [Concomitant]
     Indication: CONVULSION
     Route: 048
     Dates: start: 20060101
  11. SEROQUEL [Concomitant]
     Indication: SEDATIVE THERAPY
     Route: 048
     Dates: start: 20060101

REACTIONS (3)
  - LOSS OF CONSCIOUSNESS [None]
  - SOMNOLENCE [None]
  - SYNCOPE [None]
